FAERS Safety Report 4923806-9 (Version None)
Quarter: 2006Q1

REPORT INFORMATION
  Report Type: 
  Country: None (occurrence: None)
  Receive Date: 20060227
  Receipt Date: 20060215
  Transmission Date: 20060701
  Serious: Yes (Other)
  Sender: FDA-Public Use
  Company Number: US-MERCK-0602USA04363

PATIENT
  Age: 11 Year
  Sex: Female

DRUGS (3)
  1. SINGULAIR [Suspect]
     Indication: ASTHMA
     Route: 048
     Dates: start: 20051101, end: 20051201
  2. ALBUTEROL [Concomitant]
     Route: 065
  3. ZYRTEC [Concomitant]
     Route: 065

REACTIONS (2)
  - RASH [None]
  - SYSTEMIC LUPUS ERYTHEMATOSUS [None]
